FAERS Safety Report 25486744 (Version 1)
Quarter: 2025Q2

REPORT INFORMATION
  Report Type: Spontaneous
  Country: IL (occurrence: IL)
  Receive Date: 20250627
  Receipt Date: 20250627
  Transmission Date: 20250716
  Serious: Yes (Death, Other)
  Sender: STRIDES
  Company Number: IL-STRIDES ARCOLAB LIMITED-2025SP007820

PATIENT
  Age: 71 Year
  Sex: Female

DRUGS (7)
  1. ACYCLOVIR [Suspect]
     Active Substance: ACYCLOVIR
     Indication: Herpes simplex encephalitis
     Route: 065
  2. DEXAMETHASONE [Concomitant]
     Active Substance: DEXAMETHASONE
     Indication: Lung neoplasm malignant
     Route: 065
  3. DEXAMETHASONE [Concomitant]
     Active Substance: DEXAMETHASONE
     Indication: Metastases to central nervous system
  4. IRESSA [Concomitant]
     Active Substance: GEFITINIB
     Indication: Lung neoplasm malignant
     Route: 065
  5. IRESSA [Concomitant]
     Active Substance: GEFITINIB
     Indication: Metastases to central nervous system
  6. AFATINIB [Concomitant]
     Active Substance: AFATINIB
     Indication: Lung neoplasm malignant
     Route: 065
  7. AFATINIB [Concomitant]
     Active Substance: AFATINIB
     Indication: Metastases to central nervous system

REACTIONS (1)
  - Drug ineffective for unapproved indication [Fatal]
